FAERS Safety Report 16409857 (Version 2)
Quarter: 2019Q3

REPORT INFORMATION
  Report Type: Spontaneous
  Country: GB (occurrence: GB)
  Receive Date: 20190610
  Receipt Date: 20190712
  Transmission Date: 20191004
  Serious: Yes (Other)
  Sender: FDA-Public Use
  Company Number: GB-009507513-1906GBR000919

PATIENT
  Age: 30 Year
  Sex: Female
  Weight: 59 kg

DRUGS (2)
  1. NEXPLANON [Suspect]
     Active Substance: ETONOGESTREL
     Dosage: 1 IMPLANT, LEFT ARM
     Route: 059
     Dates: start: 20190403, end: 20190522
  2. FEXOFENADINE HYDROCHLORIDE. [Concomitant]
     Active Substance: FEXOFENADINE HYDROCHLORIDE

REACTIONS (5)
  - Device expulsion [Recovered/Resolved]
  - Device related infection [Recovered/Resolved]
  - Implant site erythema [Not Recovered/Not Resolved]
  - Implant site discharge [Recovered/Resolved]
  - Implant site swelling [Recovered/Resolved]

NARRATIVE: CASE EVENT DATE: 20190514
